FAERS Safety Report 9828273 (Version 2)
Quarter: 2014Q1

REPORT INFORMATION
  Report Type: Spontaneous
  Country: US (occurrence: US)
  Receive Date: 20140117
  Receipt Date: 20140326
  Transmission Date: 20141002
  Serious: Yes (Congenital Anomaly, Other)
  Sender: FDA-Public Use
  Company Number: US-PFIZER INC-2014014193

PATIENT
  Sex: Male

DRUGS (5)
  1. ZOLOFT [Suspect]
     Indication: ANXIETY
     Dosage: UNK
     Route: 064
     Dates: start: 20020305
  2. ZOLOFT [Suspect]
     Indication: DEPRESSION
  3. ZOLOFT [Suspect]
     Indication: AFFECTIVE DISORDER
  4. CLARITIN [Concomitant]
     Dosage: UNK
     Route: 064
  5. MULTIVITAMINS [Concomitant]
     Dosage: UNK
     Route: 064

REACTIONS (8)
  - Maternal exposure during pregnancy [Unknown]
  - Cleft lip [Unknown]
  - Asperger^s disorder [Unknown]
  - Speech disorder [Unknown]
  - Oppositional defiant disorder [Unknown]
  - Panic disorder [Unknown]
  - Obsessive-compulsive disorder [Unknown]
  - Attention deficit/hyperactivity disorder [Unknown]
